FAERS Safety Report 5063255-9 (Version None)
Quarter: 2006Q3

REPORT INFORMATION
  Report Type: 
  Country: None (occurrence: None)
  Receive Date: 20060724
  Receipt Date: 20060711
  Transmission Date: 20061208
  Serious: Yes (Hospitalization, Other)
  Sender: FDA-Public Use
  Company Number: 2006085404

PATIENT
  Age: 77 Year
  Sex: Male
  Weight: 68.9467 kg

DRUGS (3)
  1. DETROL LA [Suspect]
     Indication: HYPERTONIC BLADDER
     Dosage: 4 MG (4 MG, 1 IN 1 D)
  2. LITHIUM (LITHIUM) [Concomitant]
  3. MULTIVITAMIN [Concomitant]

REACTIONS (4)
  - HYPERTENSION [None]
  - LUNG NEOPLASM MALIGNANT [None]
  - NERVOUSNESS [None]
  - NOCTURIA [None]
